FAERS Safety Report 15355089 (Version 2)
Quarter: 2019Q2

REPORT INFORMATION
  Report Type: Spontaneous
  Country: US (occurrence: US)
  Receive Date: 20180906
  Receipt Date: 20190506
  Transmission Date: 20190711
  Serious: No
  Sender: FDA-Public Use
  Company Number: US-PFIZER INC-2018354179

PATIENT
  Age: 62 Year
  Sex: Female

DRUGS (1)
  1. XELJANZ [Suspect]
     Active Substance: TOFACITINIB CITRATE
     Indication: RHEUMATOID ARTHRITIS
     Dosage: 5 MG, 2X/DAY

REACTIONS (8)
  - Condition aggravated [Unknown]
  - Headache [Unknown]
  - Sciatica [Unknown]
  - Mobility decreased [Unknown]
  - Peripheral swelling [Unknown]
  - Pain [Unknown]
  - Erythema [Unknown]
  - Joint warmth [Unknown]
